FAERS Safety Report 9328648 (Version 1)
Quarter: 2013Q2

REPORT INFORMATION
  Report Type: Spontaneous
  Country: US (occurrence: US)
  Receive Date: 20130604
  Receipt Date: 20130604
  Transmission Date: 20140414
  Serious: No
  Sender: FDA-Public Use
  Company Number: US-SANOFI-AVENTIS-2012SA026321

PATIENT
  Age: 65 Year
  Sex: Female
  Weight: 97.52 kg

DRUGS (6)
  1. LANTUS [Suspect]
     Indication: TYPE 2 DIABETES MELLITUS
     Dosage: DOSE:10 UNIT(S)
     Route: 058
     Dates: start: 20120302
  2. LANTUS [Suspect]
     Indication: TYPE 2 DIABETES MELLITUS
     Dosage: DOSE:18 UNIT(S)
     Route: 058
     Dates: end: 20120409
  3. METFORMIN [Concomitant]
     Indication: TYPE 2 DIABETES MELLITUS
     Dates: start: 201002
  4. LEVOTHYROXINE SODIUM [Concomitant]
     Dates: start: 2007
  5. MEVACOR [Concomitant]
  6. HYDROCHLOROTHIAZIDE [Concomitant]
     Dates: start: 201002

REACTIONS (1)
  - Pain in extremity [Recovering/Resolving]
